FAERS Safety Report 21643985 (Version 3)
Quarter: 2023Q1

REPORT INFORMATION
  Report Type: Spontaneous
  Country: CZ (occurrence: CZ)
  Receive Date: 20221125
  Receipt Date: 20230123
  Transmission Date: 20230417
  Serious: Yes (Life-Threatening, Other)
  Sender: FDA-Public Use
  Company Number: None

PATIENT
  Age: 71 Year
  Sex: Female
  Weight: 97 kg

DRUGS (6)
  1. OPDIVO [Suspect]
     Active Substance: NIVOLUMAB
     Indication: Malignant melanoma
     Dosage: DOSE : 240 MG;     FREQ : EVERY 2 WEEKS?2 WEEK CYCLES. IN TOTAL 23 CYCLES
     Dates: start: 20210421, end: 20221109
  2. EGIRAMLON [Concomitant]
     Indication: Product used for unknown indication
     Dosage: 5/5 1-0-0
     Dates: start: 2006
  3. EUTHYROX [Concomitant]
     Active Substance: LEVOTHYROXINE SODIUM
     Indication: Product used for unknown indication
     Dosage: 1-0-0 FOR 6 DAYS AND 7TH DAY SKIP
  4. ATENOLOL [Concomitant]
     Active Substance: ATENOLOL
     Indication: Product used for unknown indication
     Dosage: 1-0-0
     Dates: start: 2006
  5. MAGNESIUM CARBONATE\MAGNESIUM OXIDE [Concomitant]
     Active Substance: MAGNESIUM CARBONATE\MAGNESIUM OXIDE
     Indication: Product used for unknown indication
     Dosage: 1X1
     Dates: start: 20190506
  6. CHOLECALCIFEROL [Concomitant]
     Active Substance: CHOLECALCIFEROL
     Indication: Product used for unknown indication

REACTIONS (5)
  - Anaphylactoid reaction [Recovered/Resolved]
  - Autoimmune thyroiditis [Unknown]
  - Condition aggravated [Unknown]
  - Vitiligo [Unknown]
  - Keloid scar [Recovered/Resolved]

NARRATIVE: CASE EVENT DATE: 20210505
